FAERS Safety Report 7012778-1 (Version None)
Quarter: 2010Q3

REPORT INFORMATION
  Report Type: 
  Country: None (occurrence: None)
  Receive Date: 20100924
  Receipt Date: 20100917
  Transmission Date: 20110219
  Serious: Yes (Death)
  Sender: FDA-Public Use
  Company Number: A0882830A

PATIENT
  Sex: Female

DRUGS (1)
  1. SERETIDE [Suspect]
     Route: 055
     Dates: start: 20100301, end: 20100510

REACTIONS (1)
  - INFARCTION [None]
